FAERS Safety Report 4286388-3 (Version None)
Quarter: 2004Q1

REPORT INFORMATION
  Report Type: 
  Country: None (occurrence: None)
  Receive Date: 20040126
  Receipt Date: 20031110
  Transmission Date: 20041129
  Serious: Yes (Hospitalization, Other)
  Sender: FDA-Public Use
  Company Number: USA031152175

PATIENT
  Age: 82 Year
  Sex: Female

DRUGS (1)
  1. FORTEO [Suspect]
     Indication: OSTEOPOROSIS
     Dates: start: 20030101

REACTIONS (4)
  - BLOOD PRESSURE ORTHOSTATIC DECREASED [None]
  - BLOOD SODIUM DECREASED [None]
  - FEELING ABNORMAL [None]
  - SYNCOPE [None]
